FAERS Safety Report 8325117-0 (Version None)
Quarter: 2012Q2

REPORT INFORMATION
  Report Type: 
  Country: None (occurrence: None)
  Receive Date: 20120501
  Receipt Date: 20120206
  Transmission Date: 20120825
  Serious: No
  Sender: FDA-Public Use
  Company Number: US-ABBOTT-12P-163-0902201-00

PATIENT
  Sex: Female
  Weight: 47.67 kg

DRUGS (2)
  1. CREON [Suspect]
     Indication: DYSPEPSIA
     Dosage: THREE TIMES DAILY WITH FOOD
     Dates: start: 20120101
  2. CREON [Suspect]
     Indication: PANCREATICODUODENECTOMY

REACTIONS (1)
  - FLATULENCE [None]
